FAERS Safety Report 8968243 (Version 1)
Quarter: 2012Q4

REPORT INFORMATION
  Report Type: 
  Country: US (occurrence: US)
  Receive Date: 20121217
  Receipt Date: 20121217
  Transmission Date: 20130627
  Serious: Yes (Other)
  Sender: FDA-Public Use
  Company Number: CHPA2012US024754

PATIENT
  Age: 44 Year
  Sex: Female

DRUGS (1)
  1. KERI SHEA BUTTER [Suspect]
     Indication: DRY SKIN
     Dosage: daily all over body
     Route: 061

REACTIONS (2)
  - Breast cancer [Recovered/Resolved]
  - Acne [Recovered/Resolved]
